FAERS Safety Report 6300960-8 (Version None)
Quarter: 2009Q3

REPORT INFORMATION
  Report Type: 
  Country: None (occurrence: None)
  Receive Date: 20090807
  Receipt Date: 20090729
  Transmission Date: 20100115
  Serious: Yes (Other)
  Sender: FDA-Public Use
  Company Number: AU-JNJFOC-20080603296

PATIENT
  Sex: Male
  Weight: 119.8 kg

DRUGS (4)
  1. RISPERDAL [Suspect]
     Indication: ATTENTION DEFICIT/HYPERACTIVITY DISORDER
     Route: 065
  2. INVEGA [Suspect]
     Indication: DRUG THERAPY
     Route: 065
  3. LOVAN [Concomitant]
     Indication: ANXIETY
  4. DEXAMPHETAMINE [Concomitant]
     Indication: ATTENTION DEFICIT/HYPERACTIVITY DISORDER

REACTIONS (1)
  - WEIGHT INCREASED [None]
